FAERS Safety Report 4301499-1 (Version None)
Quarter: 2004Q1

REPORT INFORMATION
  Report Type: 
  Country: None (occurrence: None)
  Receive Date: 20040220
  Receipt Date: 20040220
  Transmission Date: 20041129
  Serious: Yes (Life-Threatening)
  Sender: FDA-Public Use
  Company Number: None

PATIENT
  Age: 55 Year
  Sex: Male
  Weight: 74.8435 kg

DRUGS (2)
  1. ADVAIR DISKUS 100/50 [Suspect]
     Indication: ASTHMA
     Dosage: 1 INHALATION TWICE A DAY
     Route: 055
     Dates: start: 20021101, end: 20030228
  2. FLONASE [Suspect]
     Indication: RHINITIS
     Dosage: 1 SPRAY A DAY
     Dates: start: 20021101, end: 20030228

REACTIONS (4)
  - HERNIA [None]
  - PYREXIA [None]
  - RASH [None]
  - SWELLING [None]
